FAERS Safety Report 5497373-8 (Version None)
Quarter: 2007Q4

REPORT INFORMATION
  Report Type: 
  Country: None (occurrence: None)
  Receive Date: 20071025
  Receipt Date: 20061003
  Transmission Date: 20080405
  Serious: No
  Sender: FDA-Public Use
  Company Number: US-BRISTOL-MYERS SQUIBB COMPANY-13528500

PATIENT
  Age: 54 Year
  Sex: Female
  Weight: 52 kg

DRUGS (14)
  1. GLUCOPHAGE XR [Suspect]
     Indication: DIABETES MELLITUS
  2. AVANDIA [Concomitant]
  3. ACTONEL [Concomitant]
  4. LIPITOR [Concomitant]
  5. MONOPRIL [Concomitant]
  6. ZOLOFT [Concomitant]
  7. XALATAN [Concomitant]
     Route: 047
  8. NEXIUM [Concomitant]
  9. FERROUS SULFATE TAB [Concomitant]
  10. HYDROCORTISONE [Concomitant]
  11. MULTI-VITAMIN [Concomitant]
  12. CALTRATE [Concomitant]
  13. TYLENOL (CAPLET) [Concomitant]
  14. ASPIRIN [Concomitant]

REACTIONS (2)
  - ASTHENIA [None]
  - DIARRHOEA [None]
